FAERS Safety Report 6388034-1 (Version None)
Quarter: 2009Q4

REPORT INFORMATION
  Report Type: 
  Country: None (occurrence: None)
  Receive Date: 20091005
  Receipt Date: 20090925
  Transmission Date: 20100525
  Serious: Yes (Hospitalization)
  Sender: FDA-Public Use
  Company Number: US-JNJFOC-20090907836

PATIENT
  Sex: Female
  Weight: 78.02 kg

DRUGS (3)
  1. REMICADE [Suspect]
     Dosage: 4 VIALS
     Route: 042
     Dates: start: 20070101, end: 20090604
  2. REMICADE [Suspect]
     Route: 042
     Dates: start: 20070101, end: 20090604
  3. REMICADE [Suspect]
     Indication: CROHN'S DISEASE
     Route: 042
     Dates: start: 20070101, end: 20090604

REACTIONS (1)
  - PANCREATIC CARCINOMA [None]
